FAERS Safety Report 12856899 (Version 1)
Quarter: 2016Q4

REPORT INFORMATION
  Report Type: Spontaneous
  Country: US (occurrence: US)
  Receive Date: 20161018
  Receipt Date: 20161018
  Transmission Date: 20170207
  Serious: Yes (Hospitalization)
  Sender: FDA-Public Use
  Company Number: None

PATIENT
  Age: 8 Year
  Sex: Male
  Weight: 42 kg

DRUGS (6)
  1. DEXAMETHASONE. [Suspect]
     Active Substance: DEXAMETHASONE
     Dates: end: 20161010
  2. METHOTREXATE. [Suspect]
     Active Substance: METHOTREXATE
     Dates: end: 20161003
  3. VINCRISTINE SULFATE. [Suspect]
     Active Substance: VINCRISTINE SULFATE
     Dates: end: 20161003
  4. ONCASPAR [Suspect]
     Active Substance: PEGASPARGASE
     Dates: end: 20160928
  5. DAUNORUBICIN [Suspect]
     Active Substance: DAUNORUBICIN
     Dates: end: 20161003
  6. CYTARABINE. [Suspect]
     Active Substance: CYTARABINE
     Dates: end: 20161007

REACTIONS (8)
  - Hypoaesthesia [None]
  - Fatigue [None]
  - Peripheral coldness [None]
  - Hypotension [None]
  - Lethargy [None]
  - Abasia [None]
  - Pallor [None]
  - Malaise [None]

NARRATIVE: CASE EVENT DATE: 20161010
